FAERS Safety Report 24361133 (Version 1)
Quarter: 2024Q3

REPORT INFORMATION
  Report Type: Spontaneous
  Country: US (occurrence: US)
  Receive Date: 20240925
  Receipt Date: 20240925
  Transmission Date: 20241017
  Serious: No
  Sender: AMGEN
  Company Number: US-AMGEN-USASP2024189576

PATIENT
  Sex: Male

DRUGS (2)
  1. RAVICTI [Suspect]
     Active Substance: GLYCEROL PHENYLBUTYRATE
     Indication: Argininosuccinate lyase deficiency
     Dosage: 3.7 MILLILITER, TID TAKE 3.7 M L THREE TIMES DAILY WITH MEALS. TOTAL DAILY DOSE IS 11. 1 ML.
     Route: 048
  2. RAVICTI [Suspect]
     Active Substance: GLYCEROL PHENYLBUTYRATE
     Indication: Argininosuccinate synthetase deficiency

REACTIONS (1)
  - Prescription drug used without a prescription [Unknown]
